FAERS Safety Report 8890458 (Version 1)
Quarter: 2012Q4

REPORT INFORMATION
  Report Type: 
  Country: US (occurrence: US)
  Receive Date: 20121107
  Receipt Date: 20121107
  Transmission Date: 20130627
  Serious: Yes (Hospitalization)
  Sender: FDA-Public Use
  Company Number: US-ACTELION-A-US2012-73551

PATIENT
  Age: 41 Year
  Sex: Female

DRUGS (2)
  1. VELETRI [Suspect]
     Indication: PULMONARY ARTERIAL HYPERTENSION
     Dosage: 30 ng/kg, per min
     Route: 042
     Dates: start: 20121021
  2. LETAIRIS [Concomitant]

REACTIONS (1)
  - Myocardial infarction [Unknown]
